FAERS Safety Report 9516984 (Version 1)
Quarter: 2013Q3

REPORT INFORMATION
  Report Type: Spontaneous
  Country: PL (occurrence: PL)
  Receive Date: 20130911
  Receipt Date: 20130911
  Transmission Date: 20140515
  Serious: Yes (Other)
  Sender: FDA-Public Use
  Company Number: PL-BAXTER-2013BAX035573

PATIENT
  Age: 23 Year
  Sex: Female

DRUGS (7)
  1. GLUCOSE [Suspect]
     Indication: LYSINURIC PROTEIN INTOLERANCE
     Route: 042
  2. ARGININE [Suspect]
     Indication: LYSINURIC PROTEIN INTOLERANCE
     Dosage: 3X2 G
  3. CITRULLINE [Suspect]
     Indication: LYSINURIC PROTEIN INTOLERANCE
     Dosage: 3X10 G
  4. PREDNISONE [Suspect]
     Indication: LYSINURIC PROTEIN INTOLERANCE
  5. VITAMIN B12 [Concomitant]
     Indication: LYSINURIC PROTEIN INTOLERANCE
  6. HYDROCORTISONE [Concomitant]
     Indication: PRODUCT USED FOR UNKNOWN INDICATION
  7. BETAMETHASONE [Concomitant]
     Indication: PRODUCT USED FOR UNKNOWN INDICATION

REACTIONS (2)
  - Premature rupture of membranes [Recovered/Resolved]
  - Exposure during pregnancy [Recovered/Resolved]
